FAERS Safety Report 11715109 (Version 1)
Quarter: 2015Q4

REPORT INFORMATION
  Report Type: Spontaneous
  Country: CH (occurrence: CH)
  Receive Date: 20151109
  Receipt Date: 20151109
  Transmission Date: 20160304
  Serious: Yes (Other)
  Sender: FDA-Public Use
  Company Number: CH-BAYER-2015-460230

PATIENT
  Age: 0 Year
  Sex: Female
  Weight: 2.81 kg

DRUGS (18)
  1. SEROQUEL [Suspect]
     Active Substance: QUETIAPINE FUMARATE
     Indication: DEPRESSION
     Dosage: 25 MG, UNK
     Route: 064
     Dates: start: 2014
  2. MALTOFER [Concomitant]
     Active Substance: IRON POLYMALTOSE
     Dosage: 40 GTT, BID
     Route: 064
  3. SEROQUEL [Suspect]
     Active Substance: QUETIAPINE FUMARATE
     Indication: DEPRESSION
     Dosage: 100 MG, BID
     Route: 064
     Dates: start: 2014
  4. SERTRALINE [Suspect]
     Active Substance: SERTRALINE HYDROCHLORIDE
     Indication: DEPRESSION
     Dosage: 100 MG, QD
     Route: 064
     Dates: start: 2014
  5. ELEVIT PRONATAL [Concomitant]
     Route: 064
  6. ADALAT [Suspect]
     Active Substance: NIFEDIPINE
     Dosage: 30 MG, BID
     Route: 064
     Dates: start: 2015
  7. ELEVIT PRONATAL [Concomitant]
     Route: 064
  8. OMEPRAZOL [Suspect]
     Active Substance: OMEPRAZOLE
     Dosage: 10 MG, QD
     Route: 064
     Dates: start: 2014
  9. MAGNESIOCARD [Concomitant]
     Active Substance: MAGNESIUM ASPARTATE HYDROCHLORIDE
     Route: 064
  10. MAGNESIOCARD [Concomitant]
     Active Substance: MAGNESIUM ASPARTATE HYDROCHLORIDE
     Route: 064
  11. MALTOFER [Concomitant]
     Active Substance: IRON POLYMALTOSE
     Dosage: 40 GTT, BID
     Route: 064
  12. SEROQUEL [Suspect]
     Active Substance: QUETIAPINE FUMARATE
     Indication: DEPRESSION
     Dosage: 100 MG, BID
     Route: 064
     Dates: start: 2014
  13. ADALAT [Suspect]
     Active Substance: NIFEDIPINE
     Dosage: 30 MG, BID
     Route: 064
     Dates: start: 2015
  14. SERTRALINE [Suspect]
     Active Substance: SERTRALINE HYDROCHLORIDE
     Indication: DEPRESSION
     Dosage: 100 MG, QD
     Route: 064
     Dates: start: 2014
  15. VENTOLIN [Suspect]
     Active Substance: ALBUTEROL SULFATE
     Indication: ASTHMA
     Route: 064
     Dates: start: 2014
  16. VENTOLIN [Suspect]
     Active Substance: ALBUTEROL SULFATE
     Indication: ASTHMA
     Route: 064
     Dates: start: 2014
  17. SEROQUEL [Suspect]
     Active Substance: QUETIAPINE FUMARATE
     Indication: DEPRESSION
     Dosage: 25 MG, UNK
     Route: 064
     Dates: start: 2014
  18. OMEPRAZOL [Suspect]
     Active Substance: OMEPRAZOLE
     Dosage: 10 MG, QD
     Route: 064
     Dates: start: 2014

REACTIONS (6)
  - Anaemia neonatal [Unknown]
  - Hypoglycaemia neonatal [Recovered/Resolved]
  - Foetal exposure timing unspecified [Recovered/Resolved]
  - Cardiac murmur [Unknown]
  - Foetal growth restriction [Recovered/Resolved]
  - Neonatal respiratory distress syndrome [Recovered/Resolved]

NARRATIVE: CASE EVENT DATE: 201411
